FAERS Safety Report 14288321 (Version 8)
Quarter: 2018Q3

REPORT INFORMATION
  Report Type: Spontaneous
  Country: GB (occurrence: GB)
  Receive Date: 20171215
  Receipt Date: 20180727
  Transmission Date: 20181010
  Serious: Yes (Hospitalization, Other)
  Sender: FDA-Public Use
  Company Number: GB-B.I. PHARMACEUTICALS,INC./RIDGEFIELD-2017-12-000087

PATIENT
  Age: 43 Year
  Sex: Male

DRUGS (11)
  1. METFORMIN HYDROCHLORIDE. [Concomitant]
     Active Substance: METFORMIN HYDROCHLORIDE
     Indication: PRODUCT USED FOR UNKNOWN INDICATION
     Route: 065
  2. SIMVASTATIN. [Suspect]
     Active Substance: SIMVASTATIN
     Route: 065
  3. CLOZARIL [Suspect]
     Active Substance: CLOZAPINE
     Dosage: PM
     Route: 048
     Dates: start: 19940809
  4. CLOZARIL [Suspect]
     Active Substance: CLOZAPINE
     Indication: SCHIZOPHRENIA
     Dosage: START PERIOD 23 (YEARS)
     Route: 048
     Dates: start: 2017
  5. ATENOLOL. [Suspect]
     Active Substance: ATENOLOL
     Dosage: 25 MG QD
     Route: 065
  6. CLOZARIL [Suspect]
     Active Substance: CLOZAPINE
     Dosage: 300 MILLIGRAM DAILY; PM
     Route: 048
     Dates: start: 19940804, end: 20171020
  7. METFORMIN [Suspect]
     Active Substance: METFORMIN HYDROCHLORIDE
     Indication: DIABETES MELLITUS
     Dosage: 2 GRAM DAILY; (1 GRAM BID)
     Route: 048
  8. TRAJENTA [Suspect]
     Active Substance: LINAGLIPTIN
     Indication: DIABETES MELLITUS
     Dosage: 5 MILLIGRAM DAILY (QD); AM
     Route: 048
  9. CLOZARIL [Suspect]
     Active Substance: CLOZAPINE
     Indication: SCHIZOPHRENIA
     Dosage: AM
     Route: 048
     Dates: start: 19940804, end: 20171020
  10. ATENOLOL. [Suspect]
     Active Substance: ATENOLOL
     Indication: ARRHYTHMIA
     Dosage: 25 MILLIGRAM DAILY ?(QD); (AM)
     Route: 048
  11. SIMVASTATIN. [Suspect]
     Active Substance: SIMVASTATIN
     Indication: HYPERCHOLESTEROLAEMIA
     Dosage: 40 MILLIGRAM DAILY;(QD) (PM)
     Route: 048

REACTIONS (2)
  - Sepsis [Recovered/Resolved with Sequelae]
  - Necrotising fasciitis [Unknown]

NARRATIVE: CASE EVENT DATE: 2017
